FAERS Safety Report 15714538 (Version 1)
Quarter: 2018Q4

REPORT INFORMATION
  Report Type: Spontaneous
  Country: US (occurrence: US)
  Receive Date: 20181129
  Receipt Date: 20181129
  Transmission Date: 20190205
  Serious: No
  Sender: FDA-Public Use
  Company Number: None

PATIENT

DRUGS (1)
  1. CEFDINIR. [Suspect]
     Active Substance: CEFDINIR

REACTIONS (4)
  - Inappropriate schedule of product administration [None]
  - Product dispensing error [None]
  - Incorrect dose administered [None]
  - Vomiting [None]

NARRATIVE: CASE EVENT DATE: 2018
